FAERS Safety Report 13034856 (Version 2)
Quarter: 2017Q2

REPORT INFORMATION
  Report Type: Spontaneous
  Country: US (occurrence: US)
  Receive Date: 20161216
  Receipt Date: 20170426
  Transmission Date: 20170830
  Serious: Yes (Hospitalization)
  Sender: FDA-Public Use
  Company Number: US-AMGEN-USASP2016175366

PATIENT
  Age: 81 Year
  Sex: Female

DRUGS (9)
  1. FUROSEMIDE. [Concomitant]
     Active Substance: FUROSEMIDE
     Dosage: 80 MG, QD
  2. SYNTHROID [Concomitant]
     Active Substance: LEVOTHYROXINE SODIUM
     Indication: THYROID DISORDER
     Dosage: 25 MG, UNK
  3. SPIRONOLACTONE. [Concomitant]
     Active Substance: SPIRONOLACTONE
     Dosage: 12.5 MG, QD
  4. ZOLPIDEM [Concomitant]
     Active Substance: ZOLPIDEM\ZOLPIDEM TARTRATE
     Dosage: 10 MG, QD
  5. AMIODARONE [Concomitant]
     Active Substance: AMIODARONE
     Dosage: 200 MG, QD
  6. TIMOLOL. [Concomitant]
     Active Substance: TIMOLOL
     Dosage: UNK, QD
  7. PROLIA [Suspect]
     Active Substance: DENOSUMAB
     Indication: OSTEOPOROSIS POSTMENOPAUSAL
     Dosage: UNK, Q6MO
     Route: 065
     Dates: end: 2014
  8. METOPROLOL. [Concomitant]
     Active Substance: METOPROLOL
     Dosage: UNK MG, 25 MG EVERY MORNING AND EARLY EVENING 1.25MG
  9. WARFARIN [Concomitant]
     Active Substance: WARFARIN
     Dosage: 250 MCG-3 DAYS A WEEK, OTHER DAYS 1.25 MG AT NIGHT

REACTIONS (6)
  - Pollakiuria [Unknown]
  - Fall [Unknown]
  - Dizziness [Unknown]
  - Off label use [Unknown]
  - Walking aid user [Recovered/Resolved]
  - Contusion [Unknown]
